FAERS Safety Report 15885505 (Version 1)
Quarter: 2019Q1

REPORT INFORMATION
  Report Type: Report from Study
  Country: CA (occurrence: CA)
  Receive Date: 20190129
  Receipt Date: 20190129
  Transmission Date: 20190417
  Serious: Yes (Hospitalization, Other)
  Sender: FDA-Public Use
  Company Number: CA-BRISTOL-MYERS SQUIBB COMPANY-BMS-2017-037728

PATIENT
  Age: 77 Year
  Sex: Male

DRUGS (1)
  1. ABATACEPT [Suspect]
     Active Substance: ABATACEPT
     Indication: RHEUMATOID ARTHRITIS
     Dosage: 750 MG, Q4WK
     Route: 042
     Dates: start: 20130814

REACTIONS (17)
  - Chest pain [Recovered/Resolved]
  - Ecchymosis [Unknown]
  - Poor venous access [Recovered/Resolved]
  - Nasopharyngitis [Recovering/Resolving]
  - Mouth ulceration [Unknown]
  - Oropharyngeal pain [Unknown]
  - Pneumonia [Not Recovered/Not Resolved]
  - Skin lesion [Recovering/Resolving]
  - Fall [Unknown]
  - Scar [Unknown]
  - Skin disorder [Recovering/Resolving]
  - Pain [Unknown]
  - Skin abrasion [Recovering/Resolving]
  - Vision blurred [Not Recovered/Not Resolved]
  - Macule [Recovering/Resolving]
  - Skin haemorrhage [Unknown]
  - Contusion [Unknown]

NARRATIVE: CASE EVENT DATE: 20170601
